FAERS Safety Report 25744702 (Version 1)
Quarter: 2025Q3

REPORT INFORMATION
  Report Type: Spontaneous
  Country: EU (occurrence: EU)
  Receive Date: 20250901
  Receipt Date: 20250901
  Transmission Date: 20251020
  Serious: Yes (Disabling, Other)
  Sender: SANDOZ
  Company Number: EU-TEVA-2019-ES-1091240

PATIENT
  Age: 71 Year
  Sex: Female

DRUGS (13)
  1. AMLODIPINE [Suspect]
     Active Substance: AMLODIPINE BESYLATE
     Indication: Product used for unknown indication
     Dosage: 5 MG, QD AT BREAKFAST
     Route: 065
  2. ASPIRIN [Suspect]
     Active Substance: ASPIRIN
     Indication: Product used for unknown indication
     Dosage: 100 MG, QD
     Route: 065
  3. BROMAZEPAM [Suspect]
     Active Substance: BROMAZEPAM
     Route: 065
  4. BROMAZEPAM [Suspect]
     Active Substance: BROMAZEPAM
     Indication: Product used for unknown indication
     Dosage: 3 MG, EVERY 8 HOURS
     Route: 065
  5. LOSARTAN POTASSIUM [Suspect]
     Active Substance: LOSARTAN POTASSIUM
     Indication: Product used for unknown indication
     Dosage: 100 MG, QD AT BREAKFAST
     Route: 065
  6. OMEPRAZOLE [Suspect]
     Active Substance: OMEPRAZOLE
     Indication: Product used for unknown indication
     Dosage: 20 MG, QD
     Route: 065
  7. PREGABALIN [Suspect]
     Active Substance: PREGABALIN
     Indication: Product used for unknown indication
     Dosage: 225 MG, QD (75 MG, EVERY 8 HOURS)
     Route: 065
  8. PREGABALIN [Suspect]
     Active Substance: PREGABALIN
     Dosage: 75 MG, Q8H,225 MILLIGRAM DAILY
     Route: 065
  9. SIMVASTATIN [Suspect]
     Active Substance: SIMVASTATIN
     Indication: Product used for unknown indication
     Dosage: 10 MG, IN THE DINNER
     Route: 065
  10. OXCARBAZEPINE [Interacting]
     Active Substance: OXCARBAZEPINE
     Dosage: 300 MG, Q12H,600 MILLIGRAM DAILY
     Route: 065
  11. OXCARBAZEPINE [Interacting]
     Active Substance: OXCARBAZEPINE
     Indication: Product used for unknown indication
     Dosage: 600 MG, QD (300 MG, EVERY 12 HOURS)
     Route: 065
  12. QUETIAPINE [Interacting]
     Active Substance: QUETIAPINE
     Indication: Product used for unknown indication
     Dosage: 200 MG, BID (AT BREAKFAST AND DINNER)
     Route: 065
  13. QUETIAPINE [Interacting]
     Active Substance: QUETIAPINE
     Route: 065

REACTIONS (10)
  - Anal incontinence [Recovered/Resolved]
  - Bradykinesia [Recovered/Resolved]
  - Memory impairment [Recovered/Resolved]
  - Parkinsonism [Recovered/Resolved]
  - Dependence [Recovered/Resolved]
  - Muscle rigidity [Recovered/Resolved]
  - Insomnia [Recovered/Resolved]
  - Speech disorder [Recovered/Resolved]
  - Parkinsonism [Recovered/Resolved]
  - Drug interaction [Recovered/Resolved]
